FAERS Safety Report 10309198 (Version 2)
Quarter: 2014Q3

REPORT INFORMATION
  Report Type: Spontaneous
  Country: US (occurrence: US)
  Receive Date: 20140716
  Receipt Date: 20140716
  Transmission Date: 20150326
  Serious: Yes (Hospitalization, Other)
  Sender: FDA-Public Use
  Company Number: US-009507513-2011SP019419

PATIENT
  Sex: Female
  Weight: 68.4 kg

DRUGS (5)
  1. CITALOPRAM HYDROBROMIDE. [Concomitant]
     Active Substance: CITALOPRAM HYDROBROMIDE
     Dosage: 40 MG, QD
     Route: 048
  2. WELLBUTRIN [Suspect]
     Active Substance: BUPROPION HYDROCHLORIDE
     Indication: DEPRESSION
  3. NUVARING [Suspect]
     Active Substance: ETHINYL ESTRADIOL\ETONOGESTREL
     Indication: CONTRACEPTION
     Route: 067
     Dates: end: 20090519
  4. PHENTERMINE [Suspect]
     Active Substance: PHENTERMINE
     Indication: PRODUCT USED FOR UNKNOWN INDICATION
  5. TRAZODONE HYDROCHLORIDE. [Concomitant]
     Active Substance: TRAZODONE HYDROCHLORIDE
     Dosage: 50 MG, HS
     Route: 048

REACTIONS (20)
  - Weight increased [Unknown]
  - Abdominal pain [Recovering/Resolving]
  - Diarrhoea [Recovered/Resolved]
  - Upper respiratory tract infection [Unknown]
  - Pharyngitis [Unknown]
  - Chlamydial infection [Unknown]
  - Drug ineffective [Unknown]
  - Cholecystectomy [Unknown]
  - Spinal pain [Recovering/Resolving]
  - Facet joint syndrome [Unknown]
  - Hepatic steatosis [Unknown]
  - Back pain [Unknown]
  - Overdose [Unknown]
  - Pulmonary embolism [Recovered/Resolved with Sequelae]
  - Bronchitis [Unknown]
  - Dysfunctional uterine bleeding [Unknown]
  - Lumbar spine flattening [Unknown]
  - Anxiety [Unknown]
  - Oligomenorrhoea [Unknown]
  - Nausea [Unknown]

NARRATIVE: CASE EVENT DATE: 200506
